FAERS Safety Report 7965286-5 (Version None)
Quarter: 2011Q4

REPORT INFORMATION
  Report Type: 
  Country: None (occurrence: None)
  Receive Date: 20111208
  Receipt Date: 20111202
  Transmission Date: 20120403
  Serious: Yes (Other)
  Sender: FDA-Public Use
  Company Number: US-BAYER-200934312NA

PATIENT
  Age: 76 Year
  Sex: Male
  Weight: 75.283 kg

DRUGS (19)
  1. VERSED [Concomitant]
     Dosage: UNK
     Dates: start: 20041115, end: 20041115
  2. ZINACEF [Concomitant]
     Dosage: 1.5GM
     Route: 042
     Dates: start: 20051115, end: 20051115
  3. FOLIC ACID [Concomitant]
  4. DARVOCET [Concomitant]
  5. AMBIEN [Concomitant]
  6. IOPAMIDOL [Concomitant]
     Dosage: UNK
     Dates: start: 20041114
  7. PROTONIX [Concomitant]
  8. HEPARIN [Concomitant]
  9. EPINEPHRINE [Concomitant]
     Dosage: UNK
     Dates: start: 20041115, end: 20041115
  10. ACETYLSALICYLIC ACID SRT [Concomitant]
  11. COLACE [Concomitant]
  12. TRASYLOL [Suspect]
     Indication: CORONARY ARTERY BYPASS
     Dosage: 200CC LOADING DOSE, FOLLOWED BY 100CC/HOUR INFUSION
     Route: 042
     Dates: start: 20041115, end: 20041115
  13. TEMAZEPAM [Concomitant]
  14. PLAVIX [Concomitant]
  15. VANCOMYCIN [Concomitant]
     Dosage: UNK
     Route: 042
     Dates: start: 20051115, end: 20051115
  16. LIPITOR [Concomitant]
  17. ATENOLOL [Concomitant]
  18. MORPHINE [Concomitant]
  19. ALLOPURINOL [Concomitant]

REACTIONS (12)
  - ANXIETY [None]
  - ANHEDONIA [None]
  - DEPRESSION [None]
  - NERVOUSNESS [None]
  - RENAL FAILURE [None]
  - INJURY [None]
  - EMOTIONAL DISTRESS [None]
  - UNEVALUABLE EVENT [None]
  - FEAR [None]
  - MULTI-ORGAN FAILURE [None]
  - RENAL INJURY [None]
  - PAIN [None]
